FAERS Safety Report 4342917-2 (Version None)
Quarter: 2004Q2

REPORT INFORMATION
  Report Type: 
  Country: None (occurrence: None)
  Receive Date: 20040416
  Receipt Date: 20040407
  Transmission Date: 20050107
  Serious: Yes (Death, Life-Threatening, Hospitalization)
  Sender: FDA-Public Use
  Company Number: F01200400725

PATIENT
  Age: 79 Year
  Sex: Male

DRUGS (5)
  1. OXALIPLATIN - SOLUTION - 30 MG/M2 [Suspect]
     Indication: COLON CANCER
     Dosage: 30 MG/M2 Q3W INTRAVENOUS NOS
     Route: 042
     Dates: start: 20040304, end: 20040304
  2. CAPECITABINE - TABLET - 200 MG [Suspect]
     Dosage: 200 MG TWICE A DAY PER ORAL FROM D1 TO D15 ORAL
     Route: 048
     Dates: start: 20040304, end: 20040316
  3. ZOFRAN [Concomitant]
  4. DECADRON [Concomitant]
  5. IMODIUM [Concomitant]

REACTIONS (5)
  - ATRIAL FIBRILLATION [None]
  - CARDIAC ARREST [None]
  - DEHYDRATION [None]
  - INTESTINAL INFARCTION [None]
  - RENAL FAILURE ACUTE [None]
